FAERS Safety Report 16748937 (Version 4)
Quarter: 2019Q4

REPORT INFORMATION
  Report Type: Spontaneous
  Country: DE (occurrence: DE)
  Receive Date: 20190828
  Receipt Date: 20191211
  Transmission Date: 20200122
  Serious: Yes (Hospitalization)
  Sender: FDA-Public Use
  Company Number: DE-AUROBINDO-AUR-APL-2019-056651

PATIENT
  Age: 76 Year
  Sex: Male
  Weight: 90 kg

DRUGS (24)
  1. FLUOROURACIL. [Suspect]
     Active Substance: FLUOROURACIL
     Dosage: 832.8 MILLIGRAM, CYCLICAL
     Route: 040
     Dates: start: 20190616, end: 20190616
  2. OLMESARTAN [Concomitant]
     Active Substance: OLMESARTAN
     Indication: HYPERTENSION
     Dosage: UNK
     Route: 065
     Dates: start: 20180911
  3. EMEND [Concomitant]
     Active Substance: APREPITANT
     Indication: PROPHYLAXIS
     Dosage: UNK
     Route: 065
     Dates: start: 20190614
  4. METFORMIN [Concomitant]
     Active Substance: METFORMIN HYDROCHLORIDE
     Indication: DIABETES MELLITUS
     Dosage: UNK
     Route: 065
     Dates: start: 20180911
  5. OXALIPLATIN. [Suspect]
     Active Substance: OXALIPLATIN
     Dosage: 176.97 MILLIGRAM, CYCLICAL
     Route: 042
     Dates: start: 20190704, end: 20190704
  6. FLUOROURACIL. [Suspect]
     Active Substance: FLUOROURACIL
     Indication: PANCREATIC CARCINOMA METASTATIC
     Dosage: 4996.8 MILLIGRAM, CYCLICAL
     Route: 042
     Dates: start: 20190614, end: 20190614
  7. DEXAMETHASONE. [Concomitant]
     Active Substance: DEXAMETHASONE
     Indication: PROPHYLAXIS
     Dosage: UNK
     Route: 065
     Dates: start: 20190614
  8. OXALIPLATIN. [Suspect]
     Active Substance: OXALIPLATIN
     Dosage: 80 MILLIGRAM, CYCLICAL
     Route: 058
     Dates: start: 20190618, end: 20190618
  9. NOVAMINSULFON [Concomitant]
     Active Substance: METAMIZOLE
     Indication: ABDOMINAL PAIN
     Dosage: UNK
     Route: 065
     Dates: start: 20190611
  10. FLUOROURACIL. [Suspect]
     Active Substance: FLUOROURACIL
     Dosage: 4996.8 MILLIGRAM, CYCLICAL
     Route: 042
     Dates: start: 20190706
  11. ALFUZOSIN [Concomitant]
     Active Substance: ALFUZOSIN
     Indication: PROPHYLAXIS
     Dosage: UNK
     Route: 065
     Dates: start: 20180811
  12. FLUOROURACIL. [Suspect]
     Active Substance: FLUOROURACIL
     Dosage: 832.8 MILLIGRAM, CYCLICAL
     Route: 040
     Dates: start: 20190706, end: 20190706
  13. UNACID PD [Concomitant]
     Active Substance: SULTAMICILLIN TOSYLATE
     Indication: PRODUCT USED FOR UNKNOWN INDICATION
     Dosage: UNK
     Route: 065
  14. PANTOPRAZOLE [Concomitant]
     Active Substance: PANTOPRAZOLE
     Indication: PROPHYLAXIS
     Dosage: UNK
     Route: 065
     Dates: start: 20180911
  15. OXALIPLATIN. [Suspect]
     Active Substance: OXALIPLATIN
     Dosage: 80 MILLIGRAM, CYCLICAL
     Route: 058
     Dates: start: 20190715
  16. FLUOROURACIL. [Suspect]
     Active Substance: FLUOROURACIL
     Dosage: 832.8 MILLIGRAM, CYCLICAL
     Route: 040
     Dates: start: 20190614, end: 20190614
  17. FLUOROURACIL. [Suspect]
     Active Substance: FLUOROURACIL
     Dosage: 4996.8 MILLIGRAM, CYCLICAL
     Route: 042
     Dates: start: 20190616, end: 20190616
  18. LEUCOVORIN. [Suspect]
     Active Substance: LEUCOVORIN
     Indication: PANCREATIC CARCINOMA METASTATIC
     Dosage: 832.8 MILLIGRAM, CYCLICAL
     Route: 042
     Dates: start: 20190614, end: 20190614
  19. LEUCOVORIN. [Suspect]
     Active Substance: LEUCOVORIN
     Dosage: 832.8 MILLIGRAM, CYCLICAL
     Route: 042
     Dates: start: 20190704
  20. OXALIPLATIN. [Suspect]
     Active Substance: OXALIPLATIN
     Indication: PANCREATIC CARCINOMA METASTATIC
     Dosage: 176.97 MILLIGRAM, CYCLICAL
     Route: 042
     Dates: start: 20190614, end: 20190614
  21. OXALIPLATIN. [Suspect]
     Active Substance: OXALIPLATIN
     Dosage: 80 MILLIGRAM, CYCLICAL
     Route: 058
     Dates: start: 20190614, end: 20190614
  22. AMLODIPINE [Concomitant]
     Active Substance: AMLODIPINE BESYLATE
     Indication: HYPERTENSION
     Dosage: UNK
     Route: 065
     Dates: start: 20180911
  23. ZOFRAN [Concomitant]
     Active Substance: ONDANSETRON HYDROCHLORIDE
     Indication: PROPHYLAXIS
     Dosage: UNK
     Route: 065
     Dates: start: 20190614
  24. TRAMADOL. [Concomitant]
     Active Substance: TRAMADOL
     Indication: PARAESTHESIA
     Dosage: UNK
     Route: 065
     Dates: start: 20180911

REACTIONS (3)
  - General physical health deterioration [Recovering/Resolving]
  - Fatigue [Recovering/Resolving]
  - Infection [Not Recovered/Not Resolved]

NARRATIVE: CASE EVENT DATE: 20190620
